FAERS Safety Report 5201708-0 (Version None)
Quarter: 2006Q4

REPORT INFORMATION
  Report Type: 
  Country: None (occurrence: None)
  Receive Date: 20061012
  Receipt Date: 20060125
  Transmission Date: 20070319
  Serious: Yes (Hospitalization)
  Sender: FDA-Public Use
  Company Number: 13314

PATIENT
  Age: 40 Year
  Sex: Female

DRUGS (8)
  1. METHOTREXATE [Suspect]
     Indication: NON-HODGKIN'S LYMPHOMA
     Dosage: 1940 MG ONCE IV
     Route: 042
     Dates: start: 20051028, end: 20051029
  2. OXYCODONE HCL [Concomitant]
  3. DECADRON [Concomitant]
  4. ALLOPURINOL SODIUM [Concomitant]
  5. CIPRO [Concomitant]
  6. FLUCONAZOLE [Concomitant]
  7. ACYCLOVIR [Concomitant]
  8. ATIVAN [Concomitant]

REACTIONS (1)
  - RENAL FAILURE ACUTE [None]
